FAERS Safety Report 8128329-4 (Version None)
Quarter: 2012Q1

REPORT INFORMATION
  Report Type: 
  Country: None (occurrence: None)
  Receive Date: 20120210
  Receipt Date: 20120207
  Transmission Date: 20120608
  Serious: No
  Sender: FDA-Public Use
  Company Number: US-PFIZER INC-2012021151

PATIENT
  Sex: Female
  Weight: 93 kg

DRUGS (5)
  1. HYDROCHLOROTHIAZIDE [Concomitant]
     Indication: FLUID RETENTION
     Dosage: UNK
  2. LYRICA [Suspect]
     Indication: FLUID RETENTION
  3. METFORMIN [Concomitant]
     Indication: DIABETES MELLITUS
     Dosage: UNK
  4. METOPROLOL [Concomitant]
     Indication: HYPERTENSION
     Dosage: UNK
  5. LYRICA [Suspect]
     Indication: OEDEMA PERIPHERAL
     Dosage: 100 MG, ONCE
     Route: 048
     Dates: start: 20120124, end: 20120124

REACTIONS (4)
  - DIZZINESS [None]
  - FATIGUE [None]
  - SOMNOLENCE [None]
  - FEELING ABNORMAL [None]
